FAERS Safety Report 7604667-6 (Version None)
Quarter: 2011Q3

REPORT INFORMATION
  Report Type: 
  Country: None (occurrence: None)
  Receive Date: 20110712
  Receipt Date: 20110707
  Transmission Date: 20111222
  Serious: Yes (Death, Other)
  Sender: FDA-Public Use
  Company Number: PHHY2011GB60246

PATIENT
  Sex: Female

DRUGS (6)
  1. ASPIRIN [Suspect]
     Route: 065
  2. CITALOPRAM HYDROBROMIDE [Suspect]
     Dosage: 20 MG, UNK
  3. MIRTAZAPINE [Suspect]
     Dosage: 15 MG, UNK
  4. LITHIUM CARBONATE [Concomitant]
     Dosage: 600 MG, UNK
  5. MIRTAZAPINE [Suspect]
     Dosage: 30 MG, UNK
  6. MIRTAZAPINE [Suspect]
     Dosage: 45 MG, UNK

REACTIONS (7)
  - ANXIETY [None]
  - CONDITION AGGRAVATED [None]
  - HISTRIONIC PERSONALITY DISORDER [None]
  - COMPLETED SUICIDE [None]
  - CONFUSIONAL STATE [None]
  - OVERDOSE [None]
  - AGITATION [None]
